FAERS Safety Report 8937580 (Version 5)
Quarter: 2014Q3

REPORT INFORMATION
  Report Type: Spontaneous
  Country: US (occurrence: US)
  Receive Date: 20121130
  Receipt Date: 20140814
  Transmission Date: 20150326
  Serious: Yes (Life-Threatening, Hospitalization, Disabling, Other)
  Sender: FDA-Public Use
  Company Number: US-009507513-2012SP032595

PATIENT
  Sex: Female
  Weight: 94.33 kg

DRUGS (3)
  1. NUVARING [Suspect]
     Active Substance: ETHINYL ESTRADIOL\ETONOGESTREL
     Indication: CONTRACEPTION
     Dosage: UNK
     Route: 067
     Dates: start: 20080815, end: 20090623
  2. GABAPENTIN. [Concomitant]
     Active Substance: GABAPENTIN
     Dosage: UNK
     Dates: start: 2008
  3. TOPAMAX [Concomitant]
     Active Substance: TOPIRAMATE
     Dosage: UNK
     Dates: start: 2008, end: 2009

REACTIONS (24)
  - Gastrointestinal haemorrhage [Unknown]
  - Hypotension [Unknown]
  - Migraine [Unknown]
  - Chest pain [Unknown]
  - Cardiac arrest [Recovered/Resolved]
  - Sternotomy [Unknown]
  - Cardiac failure congestive [Unknown]
  - Sleep disorder [Unknown]
  - Pleural effusion [Unknown]
  - Nausea [Unknown]
  - Pain [Unknown]
  - Depression [Unknown]
  - Nerve injury [Unknown]
  - Thromboembolectomy [Unknown]
  - Fibromyalgia [Unknown]
  - Aneurysm [Unknown]
  - Deep vein thrombosis [Unknown]
  - Vena cava filter insertion [Unknown]
  - Cardiomegaly [Unknown]
  - Anxiety [Unknown]
  - Pulmonary embolism [Unknown]
  - Anaemia [Not Recovered/Not Resolved]
  - Leukocytosis [Unknown]
  - Gastric haemorrhage [Recovering/Resolving]

NARRATIVE: CASE EVENT DATE: 2008
